FAERS Safety Report 11331698 (Version 4)
Quarter: 2016Q3

REPORT INFORMATION
  Report Type: Spontaneous
  Country: US (occurrence: US)
  Receive Date: 20150803
  Receipt Date: 20160805
  Transmission Date: 20161109
  Serious: No
  Sender: FDA-Public Use
  Company Number: US-PFIZER INC-2015246823

PATIENT
  Age: 67 Year
  Sex: Female
  Weight: 82 kg

DRUGS (3)
  1. RAPAMUNE [Suspect]
     Active Substance: SIROLIMUS
     Indication: LIVER TRANSPLANT REJECTION
     Dosage: 5 MG, 4X/DAY
     Route: 048
  2. PREDNISONE. [Concomitant]
     Active Substance: PREDNISONE
     Dosage: UNK
  3. RAPAMUNE [Suspect]
     Active Substance: SIROLIMUS
     Indication: PROPHYLAXIS AGAINST TRANSPLANT REJECTION
     Dosage: 3 MG, 1X/DAY
     Route: 048
     Dates: start: 2010

REACTIONS (6)
  - Intentional product misuse [Unknown]
  - Intentional product use issue [Unknown]
  - Dysphonia [Unknown]
  - Visual impairment [Unknown]
  - Herpes zoster [Not Recovered/Not Resolved]
  - Product use issue [Unknown]

NARRATIVE: CASE EVENT DATE: 201607
